FAERS Safety Report 21172383 (Version 4)
Quarter: 2023Q1

REPORT INFORMATION
  Report Type: Spontaneous
  Country: US (occurrence: US)
  Receive Date: 20220804
  Receipt Date: 20230317
  Transmission Date: 20230418
  Serious: Yes (Other)
  Sender: FDA-Public Use
  Company Number: US-PFIZER INC-PV202200036085

PATIENT
  Age: 73 Year
  Sex: Female

DRUGS (1)
  1. XELJANZ [Suspect]
     Active Substance: TOFACITINIB CITRATE
     Indication: Rheumatoid arthritis
     Dosage: 5 MG, 2X/DAY

REACTIONS (11)
  - Breast cancer [Unknown]
  - Psoriatic arthropathy [Unknown]
  - Squamous cell carcinoma [Unknown]
  - Raynaud^s phenomenon [Unknown]
  - Paraesthesia [Unknown]
  - Hypoaesthesia [Unknown]
  - Arthralgia [Unknown]
  - Hand deformity [Unknown]
  - Finger deformity [Unknown]
  - Pain in extremity [Unknown]
  - Dyspnoea [Unknown]
